FAERS Safety Report 7399784-2 (Version None)
Quarter: 2011Q2

REPORT INFORMATION
  Report Type: 
  Country: None (occurrence: None)
  Receive Date: 20110407
  Receipt Date: 20110323
  Transmission Date: 20111010
  Serious: Yes (Hospitalization)
  Sender: FDA-Public Use
  Company Number: US-JNJFOC-20090501516

PATIENT
  Sex: Male
  Weight: 31.8 kg

DRUGS (3)
  1. MERCAPTOPURINE [Concomitant]
  2. REMICADE [Suspect]
     Indication: COLITIS ULCERATIVE
     Route: 042
  3. REMICADE [Suspect]
     Dosage: TOTAL 3 DOSES
     Route: 042

REACTIONS (2)
  - PAIN [None]
  - COLITIS ULCERATIVE [None]
